FAERS Safety Report 17537849 (Version 8)
Quarter: 2020Q2

REPORT INFORMATION
  Report Type: Spontaneous
  Country: US (occurrence: US)
  Receive Date: 20200313
  Receipt Date: 20200518
  Transmission Date: 20200713
  Serious: Yes (Hospitalization, Other)
  Sender: FDA-Public Use
  Company Number: US-PFIZER INC-2020063552

PATIENT
  Age: 79 Year
  Sex: Male
  Weight: 84.82 kg

DRUGS (23)
  1. ACETYLSALICYLIC ACID [Concomitant]
     Active Substance: ASPIRIN
     Dosage: UNK
  2. ASPIRIN. [Concomitant]
     Active Substance: ASPIRIN
     Indication: PERIPHERAL ARTERIAL OCCLUSIVE DISEASE
     Dosage: 81 MG, DAILY
     Route: 048
  3. COLECALCIFEROL [Concomitant]
     Active Substance: CHOLECALCIFEROL
     Indication: LIMB INJURY
  4. SIMVASTATIN. [Concomitant]
     Active Substance: SIMVASTATIN
     Indication: BLOOD CHOLESTEROL ABNORMAL
     Dosage: 20 MG, UNK (BY MOUTH EACH HOUR OF SLEEP)
     Route: 048
  5. VYNDAQEL [Suspect]
     Active Substance: TAFAMIDIS MEGLUMINE
     Indication: CARDIAC DISORDER
     Dosage: 10 MG, 1X/DAY
     Dates: start: 20200123
  6. VYNDAQEL [Suspect]
     Active Substance: TAFAMIDIS MEGLUMINE
     Indication: CARDIAC AMYLOIDOSIS
     Dosage: 10 MG, 1X/DAY
     Dates: start: 20200213
  7. DOXAZOSIN [Concomitant]
     Active Substance: DOXAZOSIN MESYLATE
     Indication: CARDIAC DISORDER
     Dosage: 2 MG, 1X/DAY (EACH NIGHT)
     Route: 048
     Dates: start: 2019
  8. NITRO [NITROFURANTOIN] [Concomitant]
     Active Substance: NITROFURANTOIN
     Indication: CARDIAC DISORDER
     Dosage: UNK
  9. ELIQUIS [Suspect]
     Active Substance: APIXABAN
     Indication: CARDIAC DISORDER
  10. ACETYLSALICYLIC ACID [Concomitant]
     Active Substance: ASPIRIN
     Dosage: 81 MG, 1X/DAY(81 MILLIGRAM, QD)
     Route: 048
  11. COLECALCIFEROL [Concomitant]
     Active Substance: CHOLECALCIFEROL
     Indication: CARDIAC DISORDER
     Dosage: 100 IU, 1X/DAY(100 UNIT, QD)
     Route: 048
  12. DOXAZOSIN [Concomitant]
     Active Substance: DOXAZOSIN MESYLATE
     Indication: CARDIAC DISORDER
  13. POTASSIUM CHLORIDE. [Concomitant]
     Active Substance: POTASSIUM CHLORIDE
     Dosage: 20 MILLIEQUIVALENT, QD
     Route: 048
     Dates: start: 2018
  14. ELIQUIS [Suspect]
     Active Substance: APIXABAN
     Indication: RENAL DISORDER
  15. VYNDAQEL [Suspect]
     Active Substance: TAFAMIDIS MEGLUMINE
     Indication: RENAL DISORDER
     Dosage: 80 MG, 1X/DAY
     Route: 048
     Dates: start: 20200101
  16. VYNDAQEL [Suspect]
     Active Substance: TAFAMIDIS MEGLUMINE
     Dosage: 10 MG, 1X/DAY
     Dates: start: 20200311
  17. ELIQUIS [Suspect]
     Active Substance: APIXABAN
     Indication: ANTICOAGULANT THERAPY
     Dosage: 5 MG, 2X/DAY(5 MILLIGRAM, BID)
     Route: 048
  18. ASPIRIN. [Concomitant]
     Active Substance: ASPIRIN
     Indication: CARDIAC DISORDER
  19. METOPROLOL. [Concomitant]
     Active Substance: METOPROLOL
     Indication: ANXIETY
     Dosage: 25 MG, 2X/DAY
     Route: 048
  20. METOPROLOL. [Concomitant]
     Active Substance: METOPROLOL
     Indication: NERVE INJURY
  21. VYNDAQEL [Suspect]
     Active Substance: TAFAMIDIS MEGLUMINE
     Indication: ATRIAL FIBRILLATION
     Dosage: 80 MG, 1X/DAY
     Route: 048
     Dates: start: 20200101
  22. VYNDAQEL [Suspect]
     Active Substance: TAFAMIDIS MEGLUMINE
     Dosage: 20 MG, 4X/DAY (20 MG I TAKE 4 IN A DAY)
  23. CHOLECALCIFEROL [Concomitant]
     Active Substance: CHOLECALCIFEROL
     Indication: SUPPLEMENTATION THERAPY
     Dosage: 1000 IU, DAILY
     Route: 048

REACTIONS (6)
  - Atrial fibrillation [Unknown]
  - Back pain [Recovered/Resolved]
  - Weight fluctuation [Unknown]
  - Pain [Unknown]
  - Dermal cyst [Recovered/Resolved with Sequelae]
  - Gait disturbance [Recovered/Resolved]

NARRATIVE: CASE EVENT DATE: 20200304
